FAERS Safety Report 8584680-5 (Version None)
Quarter: 2012Q3

REPORT INFORMATION
  Report Type: 
  Country: None (occurrence: None)
  Receive Date: 20120810
  Receipt Date: 20120731
  Transmission Date: 20120928
  Serious: Yes (Death, Hospitalization, Other)
  Sender: FDA-Public Use
  Company Number: FR-CELGENEUS-056-50794-12020771

PATIENT
  Sex: Female
  Weight: 87 kg

DRUGS (6)
  1. VIDAZA [Suspect]
     Route: 058
  2. VIDAZA [Suspect]
     Dosage: 100 MILLIGRAM
     Route: 058
     Dates: start: 20120110, end: 20120118
  3. ROCEPHIN [Concomitant]
     Dosage: 1 GRAM
     Route: 065
  4. VIDAZA [Suspect]
     Indication: ACUTE MYELOID LEUKAEMIA
     Dosage: 140 MILLIGRAM
     Route: 058
     Dates: start: 20111010, end: 20111020
  5. ROCEPHIN [Concomitant]
     Dosage: 2 GRAM
     Route: 065
     Dates: start: 20120118
  6. THEOPHYLLINE [Concomitant]
     Route: 065

REACTIONS (4)
  - THROMBOCYTOPENIA [None]
  - ACUTE MYELOID LEUKAEMIA [None]
  - TREATMENT FAILURE [None]
  - PYREXIA [None]
